FAERS Safety Report 4743590-1 (Version None)
Quarter: 2005Q3

REPORT INFORMATION
  Report Type: 
  Country: None (occurrence: None)
  Receive Date: 20050812
  Receipt Date: 20050801
  Transmission Date: 20060218
  Serious: Yes (Other)
  Sender: FDA-Public Use
  Company Number: GB-GILEAD-2005-0008581

PATIENT
  Sex: Female

DRUGS (3)
  1. VIREAD [Suspect]
     Indication: PROPHYLAXIS
     Route: 048
     Dates: start: 20050629, end: 20050714
  2. KALETRA [Suspect]
     Indication: PROPHYLAXIS
     Route: 048
     Dates: start: 20050629, end: 20050714
  3. ZIDOVUDINE [Suspect]
     Indication: PROPHYLAXIS
     Route: 048
     Dates: start: 20050629, end: 20050714

REACTIONS (3)
  - HEPATITIS [None]
  - LIVER FUNCTION TEST ABNORMAL [None]
  - NAUSEA [None]
